FAERS Safety Report 4465525-1 (Version None)
Quarter: 2004Q4

REPORT INFORMATION
  Report Type: 
  Country: None (occurrence: None)
  Receive Date: 20041004
  Receipt Date: 20040202
  Transmission Date: 20050328
  Serious: No
  Sender: FDA-Public Use
  Company Number: US-GLAXOSMITHKLINE-A0496041A

PATIENT
  Age: 13 Year
  Sex: Female

DRUGS (6)
  1. IMITREX [Suspect]
     Indication: MIGRAINE
     Route: 045
  2. INDERAL [Concomitant]
  3. VIOXX [Concomitant]
  4. DIFLUNISAL [Concomitant]
  5. BUTALBITAL [Concomitant]
  6. IMITREX [Concomitant]

REACTIONS (1)
  - HEADACHE [None]
